FAERS Safety Report 8515085-0 (Version None)
Quarter: 2012Q3

REPORT INFORMATION
  Report Type: 
  Country: None (occurrence: None)
  Receive Date: 20120717
  Receipt Date: 20120710
  Transmission Date: 20120928
  Serious: Yes (Hospitalization)
  Sender: FDA-Public Use
  Company Number: US-US-EMD SERONO, INC.-7144460

PATIENT
  Sex: Male
  Weight: 163 kg

DRUGS (3)
  1. AMPYRA [Concomitant]
     Indication: MULTIPLE SCLEROSIS
     Dosage: EVERY 12 HOURS
     Dates: start: 20120321
  2. REBIF [Suspect]
     Indication: MULTIPLE SCLEROSIS
     Route: 058
     Dates: start: 20100501
  3. PROVIGIL [Concomitant]
     Indication: FATIGUE
     Dosage: AS REQUIRED
     Dates: start: 20120321

REACTIONS (2)
  - ATRIOVENTRICULAR BLOCK FIRST DEGREE [None]
  - MULTIPLE SCLEROSIS RELAPSE [None]
